FAERS Safety Report 11067380 (Version 1)
Quarter: 2015Q2

REPORT INFORMATION
  Report Type: Spontaneous
  Country: BR (occurrence: BR)
  Receive Date: 20150427
  Receipt Date: 20150427
  Transmission Date: 20150821
  Serious: Yes (Hospitalization, Other)
  Sender: FDA-Public Use
  Company Number: BR-ABBVIE-15P-020-1381715-00

PATIENT
  Sex: Male
  Weight: 78 kg

DRUGS (8)
  1. GARDENAL [Suspect]
     Active Substance: PHENOBARBITAL
     Indication: EPILEPSY
     Route: 048
  2. DEPAKENE [Suspect]
     Active Substance: VALPROIC ACID
     Dosage: IN THE MORNING AND AT NIGHT: DAILY DOSE: 2000 MG
     Route: 048
     Dates: start: 201501
  3. GARDENAL [Suspect]
     Active Substance: PHENOBARBITAL
     Dosage: IN THE MORNING AND AT NIGHT; DAILY DOSE: 200MG
     Route: 048
  4. DEPAKENE [Suspect]
     Active Substance: VALPROIC ACID
     Indication: EPILEPSY
     Route: 065
     Dates: end: 2003
  5. DEPAKENE [Suspect]
     Active Substance: VALPROIC ACID
     Route: 048
     Dates: end: 201501
  6. GARDENAL [Suspect]
     Active Substance: PHENOBARBITAL
     Route: 065
  7. DEPAKENE [Suspect]
     Active Substance: VALPROIC ACID
     Route: 065
     Dates: start: 2003
  8. TOPIRAMATE. [Concomitant]
     Active Substance: TOPIRAMATE
     Indication: EPILEPSY
     Dosage: 1 TAB MORNING AND 2 TAB AT NIGHT; DAILY DOSE: 150MG
     Route: 048
     Dates: start: 2011

REACTIONS (9)
  - Lip discolouration [Unknown]
  - Seizure [Unknown]
  - Product use issue [Unknown]
  - Impaired work ability [Unknown]
  - Syncope [Unknown]
  - Drug ineffective [Unknown]
  - Off label use [Unknown]
  - Dyspnoea [Unknown]
  - Weight decreased [Unknown]
